FAERS Safety Report 13948817 (Version 1)
Quarter: 2017Q3

REPORT INFORMATION
  Report Type: Spontaneous
  Country: CL (occurrence: CL)
  Receive Date: 20170908
  Receipt Date: 20170908
  Transmission Date: 20171128
  Serious: Yes (Hospitalization)
  Sender: FDA-Public Use
  Company Number: CL-FRESENIUS KABI-FK201707510

PATIENT
  Age: 32 Year
  Sex: Female

DRUGS (1)
  1. MORPHINE (MANUFACTURER UNKNOWN) [Suspect]
     Active Substance: MORPHINE
     Indication: ABDOMINAL PAIN LOWER
     Route: 065

REACTIONS (2)
  - Sphincter of Oddi dysfunction [Recovered/Resolved]
  - Hepatic necrosis [Recovered/Resolved]
